FAERS Safety Report 8400306-5 (Version None)
Quarter: 2012Q2

REPORT INFORMATION
  Report Type: 
  Country: None (occurrence: None)
  Receive Date: 20120531
  Receipt Date: 20120523
  Transmission Date: 20120825
  Serious: Yes (Other)
  Sender: FDA-Public Use
  Company Number: CH-BAXTER-2012BAX006510

PATIENT
  Age: 76 Year
  Sex: Female

DRUGS (2)
  1. PAMIDRONATE DISODIUM [Suspect]
     Route: 041
     Dates: start: 20120427, end: 20120427
  2. RINGER-LACTAT BAXTER [Suspect]
     Route: 041
     Dates: start: 20120427, end: 20120427

REACTIONS (2)
  - APPLICATION SITE REACTION [None]
  - APPLICATION SITE OEDEMA [None]
